FAERS Safety Report 5125035-5 (Version None)
Quarter: 2006Q4

REPORT INFORMATION
  Report Type: 
  Country: None (occurrence: None)
  Receive Date: 20061010
  Receipt Date: 20061010
  Transmission Date: 20070319
  Serious: Yes (Hospitalization)
  Sender: FDA-Public Use
  Company Number: None

PATIENT
  Age: 56 Year
  Sex: Male

DRUGS (3)
  1. MIRTAZAPINE [Suspect]
     Indication: DEPRESSION
     Dosage: 15 MG QHS
     Dates: start: 20040801
  2. OSCAL [Concomitant]
  3. METOCLOPRAMIDE [Concomitant]

REACTIONS (1)
  - DIZZINESS [None]
